FAERS Safety Report 9519695 (Version 1)
Quarter: 2013Q1

REPORT INFORMATION
  Report Type: Spontaneous
  Country: US (occurrence: None)
  Receive Date: 20130305
  Receipt Date: 20130305
  Transmission Date: 20140127
  Serious: Yes (Other)
  Sender: FDA-Public Use
  Company Number: 163-21880-12121421

PATIENT
  Age: 67 Year
  Sex: Male
  Weight: 88.45 kg

DRUGS (5)
  1. REVLIMID [Suspect]
     Indication: PLASMA CELL MYELOMA
     Dosage: 25 MG, 21 IN 21 D, PO
     Route: 048
     Dates: start: 201003, end: 201101
  2. ACYCLOVIR (ACICLOVIR) (UNKNOWN) [Concomitant]
  3. SYNTHROID (LEVOTHYROXINE SODIUM) (UNKNOWN) [Concomitant]
  4. MULTIVITAMIN (MULTIVITAMINS) (UNKNOWN) [Concomitant]
  5. INFUSION (OTHER THERAPEUTIC PRODUCTS) (UNKNOWN) [Concomitant]

REACTIONS (3)
  - Thrombosis [None]
  - Groin pain [None]
  - Tooth loss [None]
